FAERS Safety Report 10576071 (Version 1)
Quarter: 2014Q4

REPORT INFORMATION
  Report Type: Spontaneous
  Country: US (occurrence: None)
  Receive Date: 20141107
  Receipt Date: 20141107
  Transmission Date: 20150529
  Serious: Yes (Other)
  Sender: FDA-Public Use
  Company Number: 2014-014180

PATIENT
  Sex: Female
  Weight: 61.7 kg

DRUGS (8)
  1. ASTELIN (AZELASTINE HYDROCHLORIDE) [Concomitant]
     Active Substance: AZELASTINE HYDROCHLORIDE
  2. PREDNISONE. [Concomitant]
     Active Substance: PREDNISONE
  3. XYREM [Suspect]
     Active Substance: SODIUM OXYBATE
     Route: 048
     Dates: start: 201302, end: 2013
  4. LISINOPRIL. [Concomitant]
     Active Substance: LISINOPRIL
  5. SYNTHROID [Concomitant]
     Active Substance: LEVOTHYROXINE SODIUM
  6. DURAGESIC (FENTANYL) [Concomitant]
  7. XYREM [Suspect]
     Active Substance: SODIUM OXYBATE
     Indication: NARCOLEPSY
     Route: 048
     Dates: start: 201302, end: 2013
  8. CRESTOR [Concomitant]
     Active Substance: ROSUVASTATIN CALCIUM

REACTIONS (8)
  - Hyperthyroidism [None]
  - Weight decreased [None]
  - Tremor [None]
  - Blood calcium increased [None]
  - Insulin-like growth factor increased [None]
  - Dry eye [None]
  - Parathyroid tumour [None]
  - Dry mouth [None]

NARRATIVE: CASE EVENT DATE: 2013
